FAERS Safety Report 7429367-7 (Version None)
Quarter: 2011Q2

REPORT INFORMATION
  Report Type: 
  Country: None (occurrence: None)
  Receive Date: 20110418
  Receipt Date: 20110418
  Transmission Date: 20111010
  Serious: Yes (Life-Threatening, Hospitalization, Other)
  Sender: FDA-Public Use
  Company Number: None

PATIENT
  Age: 4 Year
  Sex: Male
  Weight: 16.7831 kg

DRUGS (2)
  1. INTUNIV [Suspect]
     Indication: ATTENTION DEFICIT/HYPERACTIVITY DISORDER
     Dosage: ONE TABLET DAILY DAILY
     Dates: start: 20090811, end: 20110308
  2. INTUNIV [Suspect]
     Indication: ATTENTION DEFICIT/HYPERACTIVITY DISORDER
     Dosage: ONE TABLET DAILY DAILY
     Dates: start: 20110308, end: 20110308

REACTIONS (4)
  - PANCREATITIS [None]
  - RESPIRATORY ARREST [None]
  - VOMITING [None]
  - BLOOD PRESSURE INCREASED [None]
